FAERS Safety Report 10984386 (Version 2)
Quarter: 2015Q2

REPORT INFORMATION
  Report Type: Spontaneous
  Country: US (occurrence: US)
  Receive Date: 20150403
  Receipt Date: 20150421
  Transmission Date: 20150821
  Serious: Yes (Death, Other)
  Sender: FDA-Public Use
  Company Number: US-INCYTE CORPORATION-2015IN001164

PATIENT
  Age: 77 Year
  Sex: Male
  Weight: 79.82 kg

DRUGS (7)
  1. IMODIUM A-D [Concomitant]
     Active Substance: LOPERAMIDE HYDROCHLORIDE
     Indication: DIARRHOEA
     Dosage: 1 TO 2 TABS EVERY 4 HOURS
     Route: 048
  2. CARVEDILOL. [Concomitant]
     Active Substance: CARVEDILOL
     Dosage: 3.125 MG, BID
     Route: 048
  3. WARFARIN [Concomitant]
     Active Substance: WARFARIN
     Dosage: 1 TAB ONCE A DAY M-W-F; 0.5 TAB REST OF WEEK
     Route: 048
  4. JAKAFI [Suspect]
     Active Substance: RUXOLITINIB
     Indication: MYELOFIBROSIS
     Dosage: 20 MG, BID
     Route: 048
     Dates: start: 20141028, end: 20150120
  5. PREDNISONE. [Concomitant]
     Active Substance: PREDNISONE
     Dosage: 6 TABS FOR 3 DAYS, 5 TABS FOR 3 DAYS, 4 TABS FOR 3 DAYS, 2 TABS FOR 3 DAYS, 1 TAB FOR 3 DAYS, 1/2 TA
  6. FUROSEMIDE. [Concomitant]
     Active Substance: FUROSEMIDE
     Indication: OEDEMA
     Dosage: 1 TAB ONCE A DAY, AS NEEDED
     Route: 048
  7. POTASSIUM CHLORIDE. [Concomitant]
     Active Substance: POTASSIUM CHLORIDE
     Dosage: 20 MEQ ONCE A DAY, AS NEEDED
     Route: 048

REACTIONS (8)
  - Dyspnoea [Not Recovered/Not Resolved]
  - Asthenia [Not Recovered/Not Resolved]
  - Skin mass [Unknown]
  - Anaemia [Not Recovered/Not Resolved]
  - Fatigue [Not Recovered/Not Resolved]
  - Rheumatoid factor increased [Unknown]
  - Death [Fatal]
  - Splenomegaly [Unknown]

NARRATIVE: CASE EVENT DATE: 20150328
